FAERS Safety Report 9965102 (Version 1)
Quarter: 2014Q1

REPORT INFORMATION
  Report Type: Spontaneous
  Country: US (occurrence: US)
  Receive Date: 20140305
  Receipt Date: 20140305
  Transmission Date: 20141002
  Serious: No
  Sender: FDA-Public Use
  Company Number: US-ABBVIE-13P-163-1128420-00

PATIENT
  Age: 20 Year
  Sex: Female
  Weight: 57.2 kg

DRUGS (8)
  1. HUMIRA [Suspect]
     Indication: PRODUCT USED FOR UNKNOWN INDICATION
     Dates: start: 20130529, end: 20130529
  2. HUMIRA [Suspect]
     Dates: start: 20130612, end: 20130612
  3. HUMIRA [Suspect]
     Dates: start: 20130626, end: 20130710
  4. MEDROL DOSE PACK [Suspect]
     Indication: SKIN EXFOLIATION
     Dates: start: 201307
  5. MEDROL DOSE PACK [Suspect]
     Indication: SKIN EXFOLIATION
  6. LIALDA [Concomitant]
     Indication: CROHN^S DISEASE
  7. PREDNISONE [Concomitant]
     Indication: CROHN^S DISEASE
  8. DICYCLAMINE [Concomitant]
     Indication: MUSCLE SPASMS

REACTIONS (8)
  - Skin exfoliation [Not Recovered/Not Resolved]
  - Skin exfoliation [Not Recovered/Not Resolved]
  - Blister [Not Recovered/Not Resolved]
  - Wound drainage [Not Recovered/Not Resolved]
  - Pruritus [Not Recovered/Not Resolved]
  - Pruritus [Not Recovered/Not Resolved]
  - Skin exfoliation [Unknown]
  - Psoriasis [Unknown]
